FAERS Safety Report 22149889 (Version 1)
Quarter: 2023Q1

REPORT INFORMATION
  Report Type: Spontaneous
  Country: US (occurrence: US)
  Receive Date: 20230329
  Receipt Date: 20230329
  Transmission Date: 20230418
  Serious: No
  Sender: FDA-Public Use
  Company Number: US-AMGEN-USASP2023053698

PATIENT
  Age: 71 Year
  Sex: Female

DRUGS (11)
  1. RITUXIMAB [Suspect]
     Active Substance: RITUXIMAB
     Indication: Anti-neutrophil cytoplasmic antibody positive vasculitis
     Dosage: 375 MILLIGRAM PER SQUARE METRE, QWK, FOR 4 WEEKS
     Route: 042
  2. RITUXIMAB [Suspect]
     Active Substance: RITUXIMAB
     Indication: Antinuclear antibody positive
  3. FUROSEMIDE [Concomitant]
     Active Substance: FUROSEMIDE
     Indication: Blood pressure abnormal
     Dosage: 40 MILLIGRAM, QD
  4. METOPROLOL [Concomitant]
     Active Substance: METOPROLOL
     Indication: Blood pressure abnormal
     Dosage: 25 MILLIGRAM, BID
  5. LISINOPRIL [Concomitant]
     Active Substance: LISINOPRIL
     Indication: Blood pressure abnormal
     Dosage: 40 MILLIGRAM, QD
  6. VITAMINS [Concomitant]
     Active Substance: VITAMINS
     Dosage: UNK
  7. ACETAMINOPHEN [Concomitant]
     Active Substance: ACETAMINOPHEN
     Dosage: UNK
  8. METHYLPREDNISOLONE [Concomitant]
     Active Substance: METHYLPREDNISOLONE
     Indication: Antinuclear antibody positive
     Dosage: 70 MILLIGRAM, QD, OVER A 3 TO 4-MONTH PERIOD
  9. METHYLPREDNISOLONE [Concomitant]
     Active Substance: METHYLPREDNISOLONE
     Indication: Anti-neutrophil cytoplasmic antibody positive vasculitis
  10. ATOVAQUONE [Concomitant]
     Active Substance: ATOVAQUONE
     Indication: Prophylaxis
     Dosage: 1500 MILLIGRAM, QD
  11. ENTECAVIR [Concomitant]
     Active Substance: ENTECAVIR
     Indication: Prophylaxis
     Dosage: UNK, QWK

REACTIONS (2)
  - Drug effective for unapproved indication [Unknown]
  - Off label use [Unknown]
